FAERS Safety Report 5478151-2 (Version None)
Quarter: 2007Q4

REPORT INFORMATION
  Report Type: 
  Country: None (occurrence: None)
  Receive Date: 20071005
  Receipt Date: 20070111
  Transmission Date: 20080405
  Serious: No
  Sender: FDA-Public Use
  Company Number: US-BRISTOL-MYERS SQUIBB COMPANY-13640040

PATIENT
  Age: 63 Year
  Sex: Male
  Weight: 134 kg

DRUGS (13)
  1. AVAPRO [Suspect]
     Dates: start: 20050101
  2. ALPRAZOLAM [Concomitant]
  3. FLOMAX [Concomitant]
  4. HUMALOG [Concomitant]
  5. FUROSEMIDE [Concomitant]
  6. AVODART [Concomitant]
  7. PROTONIX [Concomitant]
  8. LIPITOR [Concomitant]
  9. ZETIA [Concomitant]
  10. LANTUS [Concomitant]
  11. VITAMIN CAP [Concomitant]
  12. FIBERCON [Concomitant]
  13. MINERAL TAB [Concomitant]

REACTIONS (1)
  - HYPOTENSION [None]
